FAERS Safety Report 5611998-8 (Version None)
Quarter: 2008Q1

REPORT INFORMATION
  Report Type: 
  Country: None (occurrence: None)
  Receive Date: 20080204
  Receipt Date: 20080129
  Transmission Date: 20080703
  Serious: Yes (Life-Threatening)
  Sender: FDA-Public Use
  Company Number: IT-WYE-G00754407

PATIENT
  Sex: Male

DRUGS (3)
  1. TAZOCIN [Suspect]
     Indication: ANTI-INFECTIVE THERAPY
     Route: 042
     Dates: start: 20071119, end: 20071206
  2. ENOXAPARIN SODIUM [Concomitant]
     Dosage: 1 DOSE
     Route: 058
  3. OMEPRAZOLE [Concomitant]
     Dosage: 20 MG
     Route: 048

REACTIONS (6)
  - ALANINE AMINOTRANSFERASE ABNORMAL [None]
  - ASPARTATE AMINOTRANSFERASE ABNORMAL [None]
  - BLOOD LACTATE DEHYDROGENASE ABNORMAL [None]
  - COAGULOPATHY [None]
  - GAMMA-GLUTAMYLTRANSFERASE ABNORMAL [None]
  - LIVER DISORDER [None]
